FAERS Safety Report 7135876-0 (Version None)
Quarter: 2010Q4

REPORT INFORMATION
  Report Type: 
  Country: None (occurrence: None)
  Receive Date: 20101119
  Receipt Date: 20101104
  Transmission Date: 20110411
  Serious: Yes (Death)
  Sender: FDA-Public Use
  Company Number: 2010000009

PATIENT
  Age: 52 Year
  Sex: Male

DRUGS (1)
  1. TARCEVA [Suspect]
     Indication: LUNG SQUAMOUS CELL CARCINOMA STAGE UNSPECIFIED
     Dosage: (150 MG,QD),ORAL
     Route: 048
     Dates: start: 20091204, end: 20091201

REACTIONS (14)
  - ACUTE RESPIRATORY DISTRESS SYNDROME [None]
  - ALANINE AMINOTRANSFERASE INCREASED [None]
  - BLOOD ALKALINE PHOSPHATASE INCREASED [None]
  - BLOOD BILIRUBIN INCREASED [None]
  - BLOOD LACTATE DEHYDROGENASE DECREASED [None]
  - EMBOLISM ARTERIAL [None]
  - GAMMA-GLUTAMYLTRANSFERASE INCREASED [None]
  - HEPATIC FUNCTION ABNORMAL [None]
  - LUNG DISORDER [None]
  - OXYGEN SATURATION DECREASED [None]
  - SCREAMING [None]
  - STRIDOR [None]
  - SUDDEN DEATH [None]
  - TUMOUR THROMBOSIS [None]
